FAERS Safety Report 5993454-0 (Version None)
Quarter: 2008Q4

REPORT INFORMATION
  Report Type: 
  Country: None (occurrence: None)
  Receive Date: 20081212
  Receipt Date: 20081201
  Transmission Date: 20090506
  Serious: Yes (Hospitalization, Other)
  Sender: FDA-Public Use
  Company Number: DE-JNJFOC-20081104158

PATIENT
  Sex: Male
  Weight: 34 kg

DRUGS (2)
  1. RISPERDAL [Suspect]
     Route: 048
  2. RISPERDAL [Suspect]
     Indication: DISTURBANCE IN SOCIAL BEHAVIOUR
     Route: 048

REACTIONS (9)
  - ACCIDENTAL OVERDOSE [None]
  - DYSPNOEA [None]
  - FEEDING DISORDER [None]
  - HYPERREFLEXIA [None]
  - HYPERTONIA [None]
  - INCORRECT DOSE ADMINISTERED [None]
  - MIOSIS [None]
  - SOMNOLENCE [None]
  - TORTICOLLIS [None]
